FAERS Safety Report 13583094 (Version 2)
Quarter: 2017Q3

REPORT INFORMATION
  Report Type: Spontaneous
  Country: US (occurrence: US)
  Receive Date: 20170525
  Receipt Date: 20170821
  Transmission Date: 20171127
  Serious: No
  Sender: FDA-Public Use
  Company Number: US-009507513-1705USA005892

PATIENT
  Sex: Male

DRUGS (1)
  1. BELSOMRA [Suspect]
     Active Substance: SUVOREXANT
     Indication: CIRCADIAN RHYTHM SLEEP DISORDER
     Dosage: ONE 20 MG TABLET, ONE TIME ONLY
     Route: 048

REACTIONS (2)
  - Somnolence [Recovered/Resolved]
  - Off label use [Unknown]
